FAERS Safety Report 6822717-1 (Version None)
Quarter: 2010Q3

REPORT INFORMATION
  Report Type: 
  Country: None (occurrence: None)
  Receive Date: 20100708
  Receipt Date: 20100628
  Transmission Date: 20110219
  Serious: Yes (Other)
  Sender: FDA-Public Use
  Company Number: SE-PFIZER INC-2010054105

PATIENT
  Age: 34 Year
  Sex: Male

DRUGS (2)
  1. LYRICA [Suspect]
     Indication: ATTENTION DEFICIT/HYPERACTIVITY DISORDER
     Dosage: 300 MG, 2X/DAY
     Dates: start: 20090101, end: 20100401
  2. CONCERTA [Suspect]
     Dosage: 36 MG, 2X/DAY
     Dates: start: 20100301

REACTIONS (10)
  - ATAXIA [None]
  - CONFUSIONAL STATE [None]
  - COORDINATION ABNORMAL [None]
  - DECREASED APPETITE [None]
  - DISSOCIATION [None]
  - HALLUCINATION, VISUAL [None]
  - INFLUENZA LIKE ILLNESS [None]
  - INSOMNIA [None]
  - STRESS [None]
  - WEIGHT DECREASED [None]
